FAERS Safety Report 7968874-5 (Version None)
Quarter: 2011Q4

REPORT INFORMATION
  Report Type: 
  Country: None (occurrence: None)
  Receive Date: 20111209
  Receipt Date: 20111202
  Transmission Date: 20120403
  Serious: Yes (Hospitalization)
  Sender: FDA-Public Use
  Company Number: UA-ABBOTT-11P-269-0872550-00

PATIENT
  Age: 51 Year
  Sex: Male

DRUGS (3)
  1. HUMIRA [Suspect]
     Indication: ANKYLOSING SPONDYLITIS
     Route: 065
     Dates: start: 20100723, end: 20110210
  2. METHYLPREDNISOLONE [Concomitant]
     Route: 065
     Dates: start: 20100820, end: 20110101
  3. METHYLPREDNISOLONE [Concomitant]
     Indication: ANKYLOSING SPONDYLITIS
     Route: 065
     Dates: start: 20040101, end: 20100820

REACTIONS (5)
  - VIRAL INFECTION [None]
  - ASTHENIA [None]
  - PNEUMONIA [None]
  - COLD EXPOSURE INJURY [None]
  - RHINORRHOEA [None]
